FAERS Safety Report 5209828-1 (Version None)
Quarter: 2007Q1

REPORT INFORMATION
  Report Type: 
  Country: None (occurrence: None)
  Receive Date: 20070116
  Receipt Date: 20070104
  Transmission Date: 20070707
  Serious: Yes (Hospitalization, Other)
  Sender: FDA-Public Use
  Company Number: GB-MERCK-0701GBR00045

PATIENT
  Age: 53 Year
  Sex: Female
  Weight: 53 kg

DRUGS (6)
  1. DECADRON [Suspect]
     Route: 042
     Dates: start: 20060929, end: 20060929
  2. GEMCITABINE [Concomitant]
     Indication: CHEMOTHERAPY
     Route: 065
     Dates: start: 20060922, end: 20060922
  3. GRANISETRON [Concomitant]
     Route: 042
     Dates: start: 20060901, end: 20060922
  4. ONDANSETRON [Concomitant]
     Indication: ANTIEMETIC SUPPORTIVE CARE
     Route: 048
     Dates: start: 20060922
  5. PALONOSETRON HYDROCHLORIDE [Concomitant]
     Route: 042
     Dates: start: 20060929
  6. SENNA [Concomitant]
     Indication: CONSTIPATION
     Route: 048

REACTIONS (3)
  - PYREXIA [None]
  - TACHYCARDIA [None]
  - TREMOR [None]
